FAERS Safety Report 6655467-5 (Version None)
Quarter: 2010Q1

REPORT INFORMATION
  Report Type: 
  Country: None (occurrence: None)
  Receive Date: 20100329
  Receipt Date: 20100317
  Transmission Date: 20100710
  Serious: Yes (Other)
  Sender: FDA-Public Use
  Company Number: JP-PFIZER INC-2010036050

PATIENT

DRUGS (1)
  1. ZYVOX [Suspect]
     Route: 042
     Dates: start: 20100308, end: 20100314

REACTIONS (1)
  - HYPONATRAEMIA [None]
